FAERS Safety Report 19708180 (Version 1)
Quarter: 2021Q3

REPORT INFORMATION
  Report Type: Spontaneous
  Country: US (occurrence: US)
  Receive Date: 20210817
  Receipt Date: 20210817
  Transmission Date: 20211014
  Serious: No
  Sender: FDA-Public Use
  Company Number: None

PATIENT
  Age: 70 Year
  Sex: Male

DRUGS (14)
  1. ATORVASTATIN [Concomitant]
     Active Substance: ATORVASTATIN
  2. LOSARTAN POT [Concomitant]
     Active Substance: LOSARTAN POTASSIUM
  3. BOTOX [Concomitant]
     Active Substance: ONABOTULINUMTOXINA
  4. ELIQUIS [Concomitant]
     Active Substance: APIXABAN
  5. PANTOPRAZOLE [Concomitant]
     Active Substance: PANTOPRAZOLE
  6. MULTIVITAMIN [Concomitant]
     Active Substance: VITAMINS
  7. NITRO?TIME [Concomitant]
     Active Substance: NITROGLYCERIN
  8. TYLENOL 8HR [Concomitant]
     Active Substance: ACETAMINOPHEN
  9. BACTRIM [Concomitant]
     Active Substance: SULFAMETHOXAZOLE\TRIMETHOPRIM
  10. AMLODIPINE [Concomitant]
     Active Substance: AMLODIPINE BESYLATE
  11. DESMOPRESSIN [Concomitant]
     Active Substance: DESMOPRESSIN
  12. AVONEX [Suspect]
     Active Substance: INTERFERON BETA-1A
     Indication: MULTIPLE SCLEROSIS
     Dosage: ?          OTHER FREQUENCY:ONCE A WEEK;?
     Route: 030
     Dates: start: 20180219
  13. FLONASE [Concomitant]
     Active Substance: FLUTICASONE PROPIONATE
  14. METOPROLOL TARTRATE. [Concomitant]
     Active Substance: METOPROLOL TARTRATE

REACTIONS (4)
  - Myocardial infarction [None]
  - Atrial fibrillation [None]
  - Contusion [None]
  - Back pain [None]
